FAERS Safety Report 4511409-X (Version None)
Quarter: 2004Q4

REPORT INFORMATION
  Report Type: 
  Country: None (occurrence: None)
  Receive Date: 20041129
  Receipt Date: 20040726
  Transmission Date: 20050328
  Serious: Yes (Other)
  Sender: FDA-Public Use
  Company Number: US-BRISTOL-MYERS SQUIBB COMPANY-12652418

PATIENT
  Age: 57 Year
  Sex: Male

DRUGS (5)
  1. ABILIFY [Suspect]
     Indication: SCHIZOAFFECTIVE DISORDER
     Route: 048
     Dates: start: 20040518, end: 20040524
  2. ABILIFY [Suspect]
     Indication: BIPOLAR DISORDER
     Route: 048
     Dates: start: 20040518, end: 20040524
  3. INSULIN [Concomitant]
  4. ZYPREXA [Concomitant]
  5. LITHONATE [Concomitant]

REACTIONS (1)
  - BLOOD GLUCOSE INCREASED [None]
